FAERS Safety Report 5964367-5 (Version None)
Quarter: 2008Q4

REPORT INFORMATION
  Report Type: 
  Country: None (occurrence: None)
  Receive Date: 20081124
  Receipt Date: 20081112
  Transmission Date: 20090506
  Serious: Yes (Death)
  Sender: FDA-Public Use
  Company Number: ZA-PFIZER INC-2008096213

PATIENT
  Age: 70 Year
  Sex: Male

DRUGS (1)
  1. GEODON [Suspect]
     Dates: start: 20080101

REACTIONS (1)
  - DEATH [None]
